FAERS Safety Report 14793743 (Version 1)
Quarter: 2018Q2

REPORT INFORMATION
  Report Type: Spontaneous
  Country: ES (occurrence: ES)
  Receive Date: 20180423
  Receipt Date: 20180423
  Transmission Date: 20180711
  Serious: Yes (Hospitalization)
  Sender: FDA-Public Use
  Company Number: ES-GLAXOSMITHKLINE-ES2018GSK055818

PATIENT
  Age: 32 Year
  Sex: Female

DRUGS (7)
  1. COMBIPRASAL [Concomitant]
     Active Substance: ALBUTEROL SULFATE\IPRATROPIUM BROMIDE
     Indication: ASTHMA
     Dosage: UNK
  2. NUCALA [Suspect]
     Active Substance: MEPOLIZUMAB
     Dosage: UNK
     Dates: start: 20170710
  3. NUCALA [Suspect]
     Active Substance: MEPOLIZUMAB
     Dosage: UNK
     Dates: start: 20180205
  4. FOSTER (BECLOMETASON + FORMOTEROL FUMARAT) [Concomitant]
     Indication: ASTHMA
     Dosage: UNK
  5. NUCALA [Suspect]
     Active Substance: MEPOLIZUMAB
     Dosage: UNK
     Dates: start: 20171113
  6. PLURALAIS [Concomitant]
     Active Substance: MONTELUKAST SODIUM
     Indication: ASTHMA
     Dosage: UNK
  7. NUCALA [Suspect]
     Active Substance: MEPOLIZUMAB
     Indication: ASTHMA
     Dosage: UNK
     Dates: start: 201706

REACTIONS (10)
  - Sinusitis [Recovering/Resolving]
  - Pyrexia [Unknown]
  - Ear disorder [Unknown]
  - Nasal septum deviation [Unknown]
  - Influenza [Unknown]
  - Nasal discharge discolouration [Unknown]
  - Swelling [Unknown]
  - Rhinorrhoea [Unknown]
  - Respiratory disorder [Unknown]
  - Sinus congestion [Unknown]

NARRATIVE: CASE EVENT DATE: 201707
